FAERS Safety Report 18107804 (Version 1)
Quarter: 2020Q3

REPORT INFORMATION
  Report Type: Spontaneous
  Country: JP (occurrence: JP)
  Receive Date: 20200804
  Receipt Date: 20200804
  Transmission Date: 20201103
  Serious: Yes (Death, Disabling)
  Sender: FDA-Public Use
  Company Number: JP-BIODELIVERY SCIENCES INTERNATIONAL-E2B_00001324

PATIENT
  Age: 43 Year
  Sex: Male

DRUGS (1)
  1. NALDEMEDINE [Suspect]
     Active Substance: NALDEMEDINE
     Indication: CONSTIPATION
     Dosage: UNKNOWN; UNKNOWN
     Route: 048

REACTIONS (2)
  - Ascites [Fatal]
  - Malignant neoplasm progression [Fatal]

NARRATIVE: CASE EVENT DATE: 20180525
